FAERS Safety Report 4850662-X (Version None)
Quarter: 2005Q4

REPORT INFORMATION
  Report Type: 
  Country: None (occurrence: None)
  Receive Date: 20051212
  Receipt Date: 20050815
  Transmission Date: 20060501
  Serious: No
  Sender: FDA-Public Use
  Company Number: US-BRISTOL-MYERS SQUIBB COMPANY-13078183

PATIENT
  Age: 58 Year
  Sex: Female
  Weight: 61 kg

DRUGS (1)
  1. QUESTRAN [Suspect]
     Indication: CHOLECYSTECTOMY
     Dosage: 1 TABLESPOON IN SIX-OUNCES OF WATER

REACTIONS (2)
  - ABDOMINAL PAIN UPPER [None]
  - HYPERTONIC BLADDER [None]
